FAERS Safety Report 5612346-X (Version None)
Quarter: 2008Q1

REPORT INFORMATION
  Report Type: 
  Country: None (occurrence: None)
  Receive Date: 20080201
  Receipt Date: 20080201
  Transmission Date: 20080703
  Serious: Yes (Hospitalization)
  Sender: FDA-Public Use
  Company Number: None

PATIENT
  Age: 49 Year
  Sex: Male
  Weight: 90 kg

DRUGS (6)
  1. OXALIPLATIN [Suspect]
     Indication: LUNG NEOPLASM MALIGNANT
     Dosage: 85MG/M2 DAY 1+15 Q 28 DAYS IV
     Route: 042
     Dates: start: 20071114
  2. LISINOPRIL [Concomitant]
  3. METOPROLOL TARTRATE [Concomitant]
  4. LOVENOX [Concomitant]
  5. NICOTINE [Concomitant]
  6. ALBUTEROL [Concomitant]

REACTIONS (4)
  - CATHETER SITE ERYTHEMA [None]
  - CATHETER SITE OEDEMA [None]
  - CATHETER SITE PAIN [None]
  - WOUND INFECTION STAPHYLOCOCCAL [None]
